FAERS Safety Report 6778883-X (Version None)
Quarter: 2010Q2

REPORT INFORMATION
  Report Type: 
  Country: None (occurrence: None)
  Receive Date: 20100618
  Receipt Date: 20100609
  Transmission Date: 20101027
  Serious: Yes (Hospitalization, Other)
  Sender: FDA-Public Use
  Company Number: US-JNJFOC-20100305589

PATIENT
  Sex: Female

DRUGS (2)
  1. LEVAQUIN [Suspect]
     Indication: INFECTION
     Route: 048
  2. LEVAQUIN [Suspect]
     Indication: RENAL DISORDER
     Route: 048

REACTIONS (5)
  - ANXIETY [None]
  - CYST [None]
  - GASTROOESOPHAGEAL REFLUX DISEASE [None]
  - TENDON INJURY [None]
  - TENDON RUPTURE [None]
